FAERS Safety Report 7213672-3 (Version None)
Quarter: 2010Q4

REPORT INFORMATION
  Report Type: 
  Country: None (occurrence: None)
  Receive Date: 20101126
  Receipt Date: 20100407
  Transmission Date: 20110411
  Serious: Yes (Disabling)
  Sender: FDA-Public Use
  Company Number: 554129

PATIENT

DRUGS (1)
  1. BUPIVACAINE HCL [Suspect]
     Indication: ANALGESIC THERAPY
     Dosage: ON A CONTINUOUS BASIS, INJECTION
     Dates: start: 20050701, end: 20050701

REACTIONS (3)
  - CHONDROLYSIS [None]
  - OFF LABEL USE [None]
  - PAIN [None]
